FAERS Safety Report 6973279-X (Version None)
Quarter: 2010Q3

REPORT INFORMATION
  Report Type: 
  Country: None (occurrence: None)
  Receive Date: 20100909
  Receipt Date: 20100901
  Transmission Date: 20110219
  Serious: Yes (Hospitalization, Other)
  Sender: FDA-Public Use
  Company Number: PHHO2007US13067

PATIENT
  Sex: Male

DRUGS (6)
  1. TASIGNA [Suspect]
     Indication: EOSINOPHILIA
     Dosage: 200 MG, QD
     Route: 048
     Dates: start: 20070702, end: 20070709
  2. TASIGNA [Suspect]
     Dosage: UNK, NO TREATMENT
     Dates: start: 20070710, end: 20070726
  3. TASIGNA [Suspect]
     Dosage: 200 MG, QD
     Route: 048
     Dates: start: 20070727, end: 20070801
  4. ASPIRIN [Concomitant]
  5. PRILOSEC [Concomitant]
  6. TRAZODONE HCL [Concomitant]

REACTIONS (3)
  - ABDOMINAL PAIN [None]
  - ANGINA PECTORIS [None]
  - PANCREATITIS ACUTE [None]
